FAERS Safety Report 9328941 (Version 2)
Quarter: 2013Q3

REPORT INFORMATION
  Report Type: Spontaneous
  Country: DE (occurrence: DE)
  Receive Date: 20130604
  Receipt Date: 20130709
  Transmission Date: 20140515
  Serious: Yes (Hospitalization)
  Sender: FDA-Public Use
  Company Number: DE-CELGENEUS-062-21880-13053725

PATIENT
  Age: 65 Year
  Sex: Male

DRUGS (9)
  1. REVLIMID [Suspect]
     Indication: PLASMA CELL MYELOMA
     Dosage: 10 MILLIGRAM
     Route: 048
     Dates: start: 20080701, end: 20080722
  2. LEVOTHYROXINE SODIUM [Concomitant]
     Indication: HYPOTHYROIDISM
     Dosage: 100UG
     Route: 065
  3. SEVREDOL [Concomitant]
     Indication: ANALGESIC THERAPY
     Dosage: 20 MILLIGRAM
     Route: 065
  4. MST-30 [Concomitant]
     Indication: ANALGESIC THERAPY
     Route: 065
  5. CALCIUM CARBONATE [Concomitant]
     Indication: CALCIUM DEFICIENCY
     Route: 065
  6. COLECALCIFEROL [Concomitant]
     Indication: BLOOD CALCIUM DECREASED
     Route: 065
  7. IBANDRONIC ACID [Concomitant]
     Indication: OSTEOLYSIS
     Dosage: .1429 MILLIGRAM
     Route: 065
  8. FERRO SANOL DUODENAL [Concomitant]
     Indication: IRON DEFICIENCY
     Route: 065
  9. DEXAMETHASONE [Concomitant]
     Indication: PLASMA CELL MYELOMA
     Dosage: 2.2857 MILLIGRAM
     Route: 065

REACTIONS (1)
  - Colon cancer [Unknown]
